FAERS Safety Report 14600926 (Version 1)
Quarter: 2018Q1

REPORT INFORMATION
  Report Type: Spontaneous
  Country: PT (occurrence: PT)
  Receive Date: 20180305
  Receipt Date: 20180305
  Transmission Date: 20180509
  Serious: Yes (Other)
  Sender: FDA-Public Use
  Company Number: PT-ACTELION-A-CH2018-168252

PATIENT
  Sex: Female

DRUGS (2)
  1. ROACTEMRA [Interacting]
     Active Substance: TOCILIZUMAB
     Indication: RHEUMATOID ARTHRITIS
     Dosage: 162 MG, UNK
     Route: 058
  2. OPSUMIT [Suspect]
     Active Substance: MACITENTAN
     Indication: PULMONARY HYPERTENSION
     Dosage: 10 MG, UNK
     Route: 048

REACTIONS (4)
  - Drug interaction [Unknown]
  - Pulmonary hypertension [Unknown]
  - Drug ineffective [Unknown]
  - Rheumatoid arthritis [Unknown]
